FAERS Safety Report 23941117 (Version 1)
Quarter: 2024Q2

REPORT INFORMATION
  Report Type: Spontaneous
  Country: ZA (occurrence: None)
  Receive Date: 20240605
  Receipt Date: 20240605
  Transmission Date: 20240716
  Serious: Yes (Hospitalization, Other)
  Sender: FDA-Public Use
  Company Number: 2024A126688

PATIENT
  Age: 80 Year
  Sex: Female

DRUGS (8)
  1. DAPAGLIFLOZIN PROPANEDIOL [Suspect]
     Active Substance: DAPAGLIFLOZIN PROPANEDIOL
     Indication: Diabetes mellitus
     Route: 048
  2. MIRTAZAPINE [Concomitant]
     Active Substance: MIRTAZAPINE
     Indication: Depression
  3. OLANZAPINE [Concomitant]
     Active Substance: OLANZAPINE
     Indication: Bipolar disorder
  4. SACUBITRIL\VALSARTAN [Concomitant]
     Active Substance: SACUBITRIL\VALSARTAN
     Indication: Cardiac failure
  5. CARVEDILOL [Concomitant]
     Active Substance: CARVEDILOL
     Indication: Hypertension
  6. CLEXANE PRE-FILLED [Concomitant]
     Indication: Blood test
  7. WARFARIN [Concomitant]
     Active Substance: WARFARIN
     Indication: Blood test
  8. SPIRACTIN [Concomitant]
     Indication: Hypertension

REACTIONS (5)
  - Hepatomegaly [Unknown]
  - Nephrolithiasis [Unknown]
  - Pancreatitis [Unknown]
  - Cardiac failure [Unknown]
  - Thrombosis [Unknown]
